FAERS Safety Report 10103055 (Version 1)
Quarter: 2014Q2

REPORT INFORMATION
  Report Type: Report from Study
  Country: US (occurrence: US)
  Receive Date: 20140424
  Receipt Date: 20140424
  Transmission Date: 20141212
  Serious: Yes (Death)
  Sender: FDA-Public Use
  Company Number: US-SA-2014SA052530

PATIENT
  Sex: 0

DRUGS (6)
  1. OXALIPLATIN [Suspect]
     Indication: COLORECTAL CANCER METASTATIC
     Dosage: 2 HOUR INFUSION
     Route: 065
  2. LEUCOVORIN [Suspect]
     Indication: COLORECTAL CANCER METASTATIC
     Dosage: 200 MG/M2 L-FORM OR 400 MG/M2 RACEMIC
     Route: 065
  3. 5-FU [Suspect]
     Indication: COLORECTAL CANCER METASTATIC
     Route: 040
  4. 5-FU [Suspect]
     Indication: COLORECTAL CANCER METASTATIC
     Dosage: 46-48 HOUR CONTINOUS INFUSION
     Route: 065
  5. BEVACIZUMAB [Suspect]
     Indication: COLORECTAL CANCER METASTATIC
     Dosage: OVER 30 MINUTES
     Route: 065
  6. CONATUMUMAB [Suspect]
     Indication: COLORECTAL CANCER METASTATIC
     Dosage: OVER 30 MINUTES
     Route: 065

REACTIONS (1)
  - Respiratory failure [Fatal]
